FAERS Safety Report 10786329 (Version 1)
Quarter: 2015Q1

REPORT INFORMATION
  Report Type: Spontaneous
  Country: US (occurrence: None)
  Receive Date: 20150210
  Receipt Date: 20150210
  Transmission Date: 20150721
  Serious: No
  Sender: FDA-Public Use
  Company Number: None

PATIENT
  Age: 59 Year
  Sex: Female
  Weight: 62.14 kg

DRUGS (1)
  1. BRISDELLE [Suspect]
     Active Substance: PAROXETINE MESYLATE
     Indication: HOT FLUSH
     Dosage: 1 PILL AT BEDTIME TAKEN BY MOUTH
     Route: 048
     Dates: start: 20141001, end: 20150119

REACTIONS (4)
  - Pain [None]
  - Scratch [None]
  - Hypoaesthesia [None]
  - Paraesthesia [None]
